FAERS Safety Report 11596425 (Version 2)
Quarter: 2015Q4

REPORT INFORMATION
  Report Type: Spontaneous
  Country: US (occurrence: None)
  Receive Date: 20151006
  Receipt Date: 20151118
  Transmission Date: 20160304
  Serious: No
  Sender: FDA-Public Use
  Company Number: US-MDT-ADR-2015-01904

PATIENT
  Age: 30 Year
  Sex: Male

DRUGS (2)
  1. COMPOUNDED BACLOFEN INTRATHECAL 2000MCG/ML [Suspect]
     Active Substance: BACLOFEN
     Indication: SPINAL CORD INJURY
     Dosage: 665.7MCG/DAY
  2. COMPOUNDED MORPHINE INTRATHECAL 1.5MG/ML [Suspect]
     Active Substance: MORPHINE
     Indication: SPINAL CORD INJURY
     Dosage: ^.4993^

REACTIONS (2)
  - Neuralgia [None]
  - Abdominal pain [None]
